FAERS Safety Report 4895333-9 (Version None)
Quarter: 2006Q1

REPORT INFORMATION
  Report Type: 
  Country: None (occurrence: None)
  Receive Date: 20060130
  Receipt Date: 20050602
  Transmission Date: 20060701
  Serious: Yes (Hospitalization)
  Sender: FDA-Public Use
  Company Number: US-MERCK-0506USA00607

PATIENT
  Age: 58 Year
  Sex: Male
  Weight: 107 kg

DRUGS (3)
  1. VIOXX [Suspect]
     Indication: ARTHRALGIA
     Route: 048
     Dates: start: 20000101, end: 20030323
  2. VIOXX [Suspect]
     Route: 048
     Dates: start: 20030324, end: 20040101
  3. ZYLOPRIM [Concomitant]
     Route: 048

REACTIONS (16)
  - ANXIETY [None]
  - ARTHRALGIA [None]
  - CALCINOSIS [None]
  - CARDIAC DISORDER [None]
  - CARPAL TUNNEL SYNDROME [None]
  - CHEST PAIN [None]
  - CORONARY ARTERY DISEASE [None]
  - CORONARY ARTERY OCCLUSION [None]
  - HEADACHE [None]
  - HYPERTENSION [None]
  - HYPERTENSIVE HEART DISEASE [None]
  - HYPERTRIGLYCERIDAEMIA [None]
  - LOW DENSITY LIPOPROTEIN DECREASED [None]
  - MYOCARDIAL INFARCTION [None]
  - OSTEOARTHRITIS [None]
  - STRESS [None]
